FAERS Safety Report 8451250-9 (Version None)
Quarter: 2012Q2

REPORT INFORMATION
  Report Type: 
  Country: None (occurrence: None)
  Receive Date: 20120620
  Receipt Date: 20120427
  Transmission Date: 20120825
  Serious: No
  Sender: FDA-Public Use
  Company Number: US-VERTEX PHARMACEUTICALS INC.-AE-2012-001745

PATIENT
  Sex: Male
  Weight: 86.26 kg

DRUGS (8)
  1. METOPROLOL SUCCINATE [Concomitant]
     Indication: HYPERTENSION
     Route: 048
  2. ALLOPURINOL [Concomitant]
     Indication: GOUT
     Route: 048
  3. IRON SUPPLEMENT [Concomitant]
     Indication: ANAEMIA
     Route: 048
  4. PANTOPRAZOLE [Concomitant]
     Indication: GASTROOESOPHAGEAL REFLUX DISEASE
     Route: 048
  5. PEGASYS [Concomitant]
     Indication: HEPATITIS C
     Route: 058
     Dates: start: 20120129
  6. INCIVEK [Suspect]
     Indication: HEPATITIS C
     Route: 048
     Dates: start: 20120129
  7. RIBAVIRIN [Concomitant]
     Indication: HEPATITIS C
     Route: 048
     Dates: start: 20120129
  8. ASCORBIC ACID [Concomitant]
     Route: 048

REACTIONS (5)
  - ANORECTAL DISCOMFORT [None]
  - FATIGUE [None]
  - DIARRHOEA [None]
  - ANAL PRURITUS [None]
  - DYSPHAGIA [None]
